FAERS Safety Report 7102064-3 (Version None)
Quarter: 2010Q4

REPORT INFORMATION
  Report Type: 
  Country: None (occurrence: None)
  Receive Date: 20101115
  Receipt Date: 20101109
  Transmission Date: 20110411
  Serious: Yes (Disabling)
  Sender: FDA-Public Use
  Company Number: FR-ROCHE-737501

PATIENT
  Sex: Female

DRUGS (12)
  1. PEGASYS [Suspect]
     Dosage: DOSE: 0.1429, DRUG REPORTED AS: PEGASYS 180 UG INJECTABLE SOULTION
     Route: 058
     Dates: start: 20091030, end: 20100817
  2. COPEGUS [Suspect]
     Dosage: DRUG REPORTED AS: COPEGUS 400 MG COATED TABLET
     Route: 048
     Dates: start: 20091030, end: 20100817
  3. TRUVADA [Suspect]
     Indication: HIV ANTIGEN POSITIVE
     Dosage: DRUG: TRUVADA 200/245 MG, COATED TABLET
     Route: 048
     Dates: start: 20050308, end: 20070802
  4. TRUVADA [Suspect]
     Route: 048
     Dates: start: 20071016
  5. REYATAZ [Suspect]
     Indication: HIV ANTIGEN POSITIVE
     Route: 065
     Dates: start: 20050308, end: 20070802
  6. REYATAZ [Suspect]
     Route: 065
     Dates: start: 20071016
  7. BACTRIM [Concomitant]
     Indication: PROPHYLAXIS
     Dosage: DRUG REPORTED AS BACTRIM ADULTES
     Route: 048
     Dates: start: 20050308
  8. MS CONTIN [Concomitant]
     Dosage: DRUG REPORTED AS MONSCONTIN 100 MG, COATED TABLET
  9. CHLOROQUINE PHOSPHATE [Concomitant]
     Dosage: FORM: DIVISIBLE TABLET
  10. SEROPLEX [Concomitant]
     Indication: DEPRESSION
     Dosage: DRUG REPORTED AS: SEROPLEX 20 MG, DIVISIBLE COATED TABLET
     Route: 048
  11. LEVOTHYROXINE SODIUM [Concomitant]
     Indication: HYPOTHYROIDISM
     Dosage: FORM: DIVISIBLE TABLET
  12. SERESTA [Concomitant]

REACTIONS (1)
  - OSTEONECROSIS [None]
